FAERS Safety Report 18668379 (Version 1)
Quarter: 2020Q4

REPORT INFORMATION
  Report Type: Spontaneous
  Country: DE (occurrence: DE)
  Receive Date: 20201228
  Receipt Date: 20201228
  Transmission Date: 20210114
  Serious: Yes (Hospitalization)
  Sender: FDA-Public Use
  Company Number: NVSC2020DE338524

PATIENT
  Age: 60 Year
  Sex: Male

DRUGS (10)
  1. PEMBROLIZUMAB. [Suspect]
     Active Substance: PEMBROLIZUMAB
     Indication: PRODUCT USED FOR UNKNOWN INDICATION
     Dosage: 200 MG (200 MG, 22092020)
     Route: 065
     Dates: end: 20200922
  2. SALBUTAMOL [Concomitant]
     Active Substance: ALBUTEROL
     Indication: PRODUCT USED FOR UNKNOWN INDICATION
     Dosage: UNK, PRN (BEI BEDARF)
     Route: 065
  3. CARBOPLATIN. [Suspect]
     Active Substance: CARBOPLATIN
     Indication: PRODUCT USED FOR UNKNOWN INDICATION
     Dosage: 500 MG (500 MG, LETZTE 11082020 NUN PAUSE)
     Route: 065
     Dates: end: 20200811
  4. PEMETREXED. [Suspect]
     Active Substance: PEMETREXED
     Indication: PRODUCT USED FOR UNKNOWN INDICATION
     Dosage: 780 MG (780 MG, 22092020)
     Route: 065
     Dates: end: 20200922
  5. UMECLIDINIUM BROMIDE [Concomitant]
     Active Substance: UMECLIDINIUM BROMIDE
     Indication: PRODUCT USED FOR UNKNOWN INDICATION
     Dosage: UNK (62.5|25 ?G, 1-0-1-0)
     Route: 065
  6. VERAPAMIL [Concomitant]
     Active Substance: VERAPAMIL HYDROCHLORIDE
     Indication: PRODUCT USED FOR UNKNOWN INDICATION
     Dosage: 40 MG, Q12H (40 MG, 1-0-1-0)
     Route: 065
  7. PANTOPRAZOLE [Concomitant]
     Active Substance: PANTOPRAZOLE
     Indication: PRODUCT USED FOR UNKNOWN INDICATION
     Dosage: 40 MG, QD (40 MG, 1-0-0-0)
     Route: 065
  8. ACETYLSALICYLSAEURE [Concomitant]
     Active Substance: ASPIRIN
     Indication: PRODUCT USED FOR UNKNOWN INDICATION
     Dosage: 100 MG, QD (100 MG, 1-0-0-0)
     Route: 065
  9. FLUCONAZOL [Suspect]
     Active Substance: FLUCONAZOLE
     Indication: PRODUCT USED FOR UNKNOWN INDICATION
     Dosage: 200 MG (200 MG, ABGESETZT 15092020)
     Route: 065
     Dates: end: 20200915
  10. FOLIC ACID. [Concomitant]
     Active Substance: FOLIC ACID
     Indication: PRODUCT USED FOR UNKNOWN INDICATION
     Dosage: 5 MG, QD (5 MG, 1-0-0-0)
     Route: 065

REACTIONS (8)
  - Cachexia [Unknown]
  - Cough [Unknown]
  - Wheezing [Unknown]
  - General physical health deterioration [Unknown]
  - Dysphagia [Unknown]
  - Condition aggravated [Unknown]
  - Anaemia [Unknown]
  - Product dose omission issue [Unknown]
